FAERS Safety Report 5762143-X (Version None)
Quarter: 2008Q2

REPORT INFORMATION
  Report Type: 
  Country: None (occurrence: None)
  Receive Date: 20080604
  Receipt Date: 20080520
  Transmission Date: 20081010
  Serious: Yes (Hospitalization)
  Sender: FDA-Public Use
  Company Number: DSM-2008-00495

PATIENT
  Age: 46 Year
  Sex: Female

DRUGS (4)
  1. VOTUM PLUS 20/25 (HYDROCHLOROTHIAZIDE, OLMESARTAN MEDOXOMIL) (TABLET) [Suspect]
     Indication: HYPERTENSION
     Dosage: 20/25 MG (1 IN 1 D), ORAL
     Route: 048
     Dates: start: 20080409, end: 20080410
  2. SIMVAHEXAL (SIMVASTATIN) (SIMVASTATIN) [Suspect]
     Indication: CORONARY ARTERY DISEASE
     Dosage: 20 MG, ORAL
     Route: 048
     Dates: start: 20071001, end: 20080401
  3. AMLODIPINE [Suspect]
     Indication: HYPERTENSION
     Dosage: 5 MG, ORAL
     Route: 048
     Dates: start: 20080301, end: 20080411
  4. RAMIPRIL [Concomitant]

REACTIONS (3)
  - DRUG TOXICITY [None]
  - HEPATITIS CHOLESTATIC [None]
  - RASH [None]
